FAERS Safety Report 11437089 (Version 2)
Quarter: 2015Q3

REPORT INFORMATION
  Report Type: Spontaneous
  Country: US (occurrence: US)
  Receive Date: 20150821
  Receipt Date: 20150831
  Transmission Date: 20151125
  Serious: Yes (Death)
  Sender: FDA-Public Use
  Company Number: US-ELI_LILLY_AND_COMPANY-US200702004242

PATIENT
  Age: 18 Year
  Sex: Male
  Weight: 99.77 kg

DRUGS (4)
  1. PREDNISONE. [Concomitant]
     Active Substance: PREDNISONE
  2. AMOXICILLIN AND CLAVULANATE POTASSIUM [Concomitant]
     Active Substance: AMOXICILLIN\CLAVULANATE POTASSIUM
  3. CLONAZEPAM. [Concomitant]
     Active Substance: CLONAZEPAM
  4. CYMBALTA [Suspect]
     Active Substance: DULOXETINE HYDROCHLORIDE
     Indication: DEPRESSION
     Dosage: 60 MG, DAILY (1/D)
     Dates: start: 20061205, end: 20061221

REACTIONS (7)
  - Educational problem [Unknown]
  - Sinus disorder [Unknown]
  - Depression [Unknown]
  - Constipation [Unknown]
  - Rectal haemorrhage [Unknown]
  - Completed suicide [Fatal]
  - Panic attack [Unknown]

NARRATIVE: CASE EVENT DATE: 200612
